FAERS Safety Report 25591787 (Version 1)
Quarter: 2025Q3

REPORT INFORMATION
  Report Type: Spontaneous
  Country: US (occurrence: None)
  Receive Date: 20250722
  Receipt Date: 20250722
  Transmission Date: 20251020
  Serious: Yes (Hospitalization, Other)
  Sender: FDA-CTU
  Company Number: None

PATIENT
  Age: 73 Year
  Sex: Male
  Weight: 77.1 kg

DRUGS (11)
  1. ERTAPENEM SODIUM [Suspect]
     Active Substance: ERTAPENEM SODIUM
     Indication: Bacterial infection
     Dosage: 1000 MG DAILY INTRAVENOUS?
     Route: 042
     Dates: start: 20250609
  2. Acetamnophen 500 mg [Concomitant]
  3. Albuterol Inhaler 90 mcg/actuation [Concomitant]
     Dates: start: 20240709
  4. Alprazolam O .5 mg tablet [Concomitant]
  5. AMITRIPTYLINE HYDROCHLORIDE [Concomitant]
     Active Substance: AMITRIPTYLINE HYDROCHLORIDE
  6. Aspirin 81 mg chewable tablet [Concomitant]
  7. cyclobenzaprlne 5 mg tablet [Concomitant]
  8. Atorvastalin 80 mg tablet [Concomitant]
  9. Flutlcasone-salmeterol 250-50 mcg/dose disk Inhale [Concomitant]
     Dates: start: 20240802
  10. RIVAROXABAN [Concomitant]
     Active Substance: RIVAROXABAN
  11. TRAZODONE [Concomitant]
     Active Substance: TRAZODONE HYDROCHLORIDE

REACTIONS (3)
  - Thrombocytopenia [None]
  - Confusional state [None]
  - Drug hypersensitivity [None]

NARRATIVE: CASE EVENT DATE: 20250621
